FAERS Safety Report 6366848-1 (Version None)
Quarter: 2009Q3

REPORT INFORMATION
  Report Type: 
  Country: None (occurrence: None)
  Receive Date: 20090921
  Receipt Date: 20090911
  Transmission Date: 20100115
  Serious: Yes (Hospitalization)
  Sender: FDA-Public Use
  Company Number: US-ABBOTT-08P-163-0492155-00

PATIENT
  Sex: Male
  Weight: 107.14 kg

DRUGS (14)
  1. HUMIRA [Suspect]
     Indication: PSORIASIS
     Route: 058
     Dates: start: 20040706
  2. ASPIRIN [Concomitant]
     Indication: CARDIOVASCULAR EVENT PROPHYLAXIS
     Dates: start: 19920101
  3. INDAPAMIDE [Concomitant]
     Indication: HYPERTENSION
     Dates: start: 19980101
  4. CHLOR-TRIMETON [Concomitant]
     Indication: SINUS DISORDER
     Dates: start: 20010101
  5. AVANDIA [Concomitant]
     Indication: DIABETES MELLITUS
     Dates: start: 20031125
  6. LISINOPRIL [Concomitant]
     Indication: HYPERTENSION
     Dates: start: 19830101
  7. METOPROLOL TARTRATE [Concomitant]
     Indication: HYPERTENSION
     Dates: start: 19830101, end: 20060927
  8. METOPROLOL TARTRATE [Concomitant]
     Dates: start: 20060928
  9. FERROUS SULFATE TAB [Concomitant]
     Indication: MEDICAL DIET
     Dates: start: 20010101
  10. VYTORIN [Concomitant]
     Indication: HYPERLIPIDAEMIA
     Dates: start: 20051016
  11. ACTOS [Concomitant]
     Indication: DIABETES MELLITUS
     Dates: start: 20070531
  12. PREDNISONE [Concomitant]
     Indication: DACTYLITIS
     Route: 048
     Dates: start: 20081004
  13. FAMOTIDINE [Concomitant]
     Indication: DYSPEPSIA
     Dates: start: 20070101
  14. FAMOTIDINE [Concomitant]
     Indication: PROPHYLAXIS

REACTIONS (1)
  - CORONARY ARTERY DISEASE [None]
